FAERS Safety Report 8575868-8 (Version None)
Quarter: 2012Q3

REPORT INFORMATION
  Report Type: 
  Country: None (occurrence: None)
  Receive Date: 20120807
  Receipt Date: 20120720
  Transmission Date: 20120928
  Serious: No
  Sender: FDA-Public Use
  Company Number: US-009507513-1208USA001394

PATIENT

DRUGS (3)
  1. CLARITIN [Suspect]
     Dosage: 10 MG, ONCE
     Route: 048
     Dates: start: 20120719
  2. CLARITIN [Suspect]
     Indication: SEASONAL ALLERGY
     Dosage: 5 MG, QAM
     Route: 048
  3. SINGULAIR [Concomitant]
     Indication: PRODUCT USED FOR UNKNOWN INDICATION
     Dosage: UNK, QPM

REACTIONS (1)
  - ACCIDENTAL OVERDOSE [None]
